FAERS Safety Report 8324699-2 (Version None)
Quarter: 2012Q1

REPORT INFORMATION
  Report Type: 
  Country: None (occurrence: None)
  Receive Date: 20120315
  Receipt Date: 20110324
  Transmission Date: 20120608
  Serious: No
  Sender: FDA-Public Use
  Company Number: PHHY2011US10335

PATIENT
  Age: 50 Year
  Sex: Female

DRUGS (15)
  1. LANSOPRAZOLE [Concomitant]
  2. GILENYA [Suspect]
     Indication: MULTIPLE SCLEROSIS
     Dosage: 0.5 MG, DAILY, ORAL
     Route: 048
     Dates: start: 20110120
  3. BELLADONNA + PAPAVERINE + PHENOBARBITAL (ATROPA BELLADONNA EXTRACT, BE [Concomitant]
  4. MIGRANAL ^NOVARTIS PHARMA^ (DIHYDROERGOTAMINE MESILATE) [Concomitant]
  5. CELEBREX [Concomitant]
  6. GABAPENTIN [Concomitant]
  7. METAXALONE [Concomitant]
  8. ERGOCALCIFEROL [Concomitant]
  9. MAXALT /NET/ (RIZATRIPTAN) [Concomitant]
  10. TOPAMAX [Concomitant]
  11. HYDROCODONE W/IBUPROFEN (HYDROCODONE, IBUPROFEN) [Concomitant]
  12. ENABLEX [Concomitant]
  13. CIPROFLOXACIN [Concomitant]
  14. DRONABINOL [Concomitant]
  15. AMPYRA [Concomitant]

REACTIONS (2)
  - NIGHTMARE [None]
  - FATIGUE [None]
